FAERS Safety Report 8695054 (Version 4)
Quarter: 2012Q4

REPORT INFORMATION
  Report Type: Report from Study
  Country: US (occurrence: US)
  Receive Date: 20120731
  Receipt Date: 20121112
  Transmission Date: 20130627
  Serious: Yes (Life-Threatening, Hospitalization, Other)
  Sender: FDA-Public Use
  Company Number: US-ROCHE-1089140

PATIENT
  Age: 31 Year
  Sex: Female
  Weight: 52.21 kg

DRUGS (9)
  1. TRASTUZUMAB [Suspect]
     Indication: BREAST CANCER
     Route: 065
     Dates: start: 20101018, end: 20111101
  2. PRENATAL VITAMIN [Concomitant]
     Route: 065
     Dates: start: 2012
  3. ZOFRAN [Concomitant]
  4. DECADRON [Concomitant]
  5. STOOL SOFTENER (NAME UNK) [Concomitant]
  6. KYTRIL [Concomitant]
  7. PEPCID [Concomitant]
  8. BENADRYL [Concomitant]
  9. HYDROCORTISONE [Concomitant]

REACTIONS (4)
  - Premature delivery [Recovered/Resolved]
  - Oligohydramnios [Recovered/Resolved]
  - Abortion threatened [Unknown]
  - Exposure during pregnancy [Unknown]
